FAERS Safety Report 9614413 (Version 1)
Quarter: 2013Q4

REPORT INFORMATION
  Report Type: Spontaneous
  Country: US (occurrence: US)
  Receive Date: 20131011
  Receipt Date: 20131011
  Transmission Date: 20140711
  Serious: No
  Sender: FDA-Public Use
  Company Number: US-TEVA-436969USA

PATIENT
  Age: 73 Year
  Sex: Male
  Weight: 102.15 kg

DRUGS (9)
  1. AZILECT [Suspect]
     Indication: PARKINSON^S DISEASE
     Dates: start: 20130907
  2. ATENOLOL [Concomitant]
     Indication: HYPERTENSION
  3. SIMVASTATIN [Concomitant]
     Indication: HYPERCHOLESTEROLAEMIA
  4. OXYBUTYNIN [Concomitant]
     Indication: URINARY INCONTINENCE
  5. BABY ASPIRIN [Concomitant]
     Indication: PROPHYLAXIS
  6. GLYBURIDE [Concomitant]
     Indication: DIABETES MELLITUS
  7. LISINOPRIL [Concomitant]
     Indication: HYPERTENSION
  8. ZETIA [Concomitant]
     Indication: HYPERCHOLESTEROLAEMIA
  9. CARBIDOPA W/LEVODOPA [Concomitant]
     Indication: PARKINSON^S DISEASE

REACTIONS (6)
  - Chromaturia [Recovered/Resolved]
  - Balance disorder [Not Recovered/Not Resolved]
  - Dry mouth [Not Recovered/Not Resolved]
  - Tremor [Not Recovered/Not Resolved]
  - Confusional state [Not Recovered/Not Resolved]
  - Abdominal discomfort [Recovered/Resolved]
